FAERS Safety Report 15814156 (Version 1)
Quarter: 2019Q1

REPORT INFORMATION
  Report Type: Spontaneous
  Country: US (occurrence: US)
  Receive Date: 20190111
  Receipt Date: 20190111
  Transmission Date: 20190417
  Serious: Yes (Hospitalization)
  Sender: FDA-Public Use
  Company Number: US-LUNDBECK-DKLU2059127

PATIENT
  Age: 81 Year
  Sex: Female

DRUGS (1)
  1. NORTHERA [Suspect]
     Active Substance: DROXIDOPA
     Indication: ORTHOSTATIC HYPERTENSION
     Route: 048
     Dates: start: 20181122

REACTIONS (2)
  - Hypertension [Unknown]
  - Muscle strain [Unknown]

NARRATIVE: CASE EVENT DATE: 20181222
